FAERS Safety Report 21577051 (Version 1)
Quarter: 2022Q4

REPORT INFORMATION
  Report Type: Spontaneous
  Country: BA (occurrence: BA)
  Receive Date: 20221110
  Receipt Date: 20221110
  Transmission Date: 20230113
  Serious: Yes (Other)
  Sender: FDA-Public Use
  Company Number: BA-HRAPH01-2022001260

PATIENT
  Age: 45 Year
  Sex: Female

DRUGS (1)
  1. ULIPRISTAL ACETATE [Suspect]
     Active Substance: ULIPRISTAL ACETATE
     Indication: Post coital contraception
     Dosage: TABLET OF 30 MG
     Route: 048
     Dates: start: 20220609, end: 20220609

REACTIONS (4)
  - Haemorrhage in pregnancy [Recovered/Resolved]
  - Unintended pregnancy [Recovered/Resolved]
  - Leukocyturia [Unknown]
  - Abortion induced [Recovered/Resolved]

NARRATIVE: CASE EVENT DATE: 20220601
